FAERS Safety Report 9363223 (Version 2)
Quarter: 2013Q3

REPORT INFORMATION
  Report Type: Spontaneous
  Country: US (occurrence: US)
  Receive Date: 20130624
  Receipt Date: 20130801
  Transmission Date: 20140515
  Serious: No
  Sender: FDA-Public Use
  Company Number: US-009507513-1306USA006039

PATIENT
  Sex: Male

DRUGS (8)
  1. THERAPY UNSPECIFIED [Suspect]
     Dosage: TOTAL DAILY DOSE: 800MG, TID
     Route: 048
     Dates: start: 20130508
  2. PEGASYS [Suspect]
  3. RIBAPAK [Suspect]
  4. XANAX [Concomitant]
  5. VISTARIL [Concomitant]
  6. PROMETHAZINE [Concomitant]
  7. DOXEPIN HYDROCHLORIDE [Concomitant]
  8. LORATAB [Concomitant]

REACTIONS (1)
  - Influenza like illness [Not Recovered/Not Resolved]
